FAERS Safety Report 21816732 (Version 1)
Quarter: 2023Q1

REPORT INFORMATION
  Report Type: Spontaneous
  Country: US (occurrence: US)
  Receive Date: 20230104
  Receipt Date: 20230104
  Transmission Date: 20230417
  Serious: Yes (Hospitalization, Other)
  Sender: FDA-Public Use
  Company Number: US-SA-2023SA000805

PATIENT
  Age: 70 Year
  Sex: Male

DRUGS (2)
  1. CLOPIDOGREL BISULFATE [Suspect]
     Active Substance: CLOPIDOGREL BISULFATE
     Indication: Transient ischaemic attack
     Dosage: UNK
  2. ASPIRIN [Suspect]
     Active Substance: ASPIRIN
     Indication: Transient ischaemic attack
     Dosage: UNK

REACTIONS (7)
  - Pharyngo-oesophageal diverticulum [Recovering/Resolving]
  - Oesophageal ulcer haemorrhage [Recovering/Resolving]
  - Haematemesis [Recovering/Resolving]
  - Sensation of foreign body [Recovering/Resolving]
  - Haemorrhage [Recovering/Resolving]
  - Thrombosis [Recovering/Resolving]
  - Oesophageal ulcer [Recovering/Resolving]
